FAERS Safety Report 4293564-2 (Version None)
Quarter: 2004Q1

REPORT INFORMATION
  Report Type: 
  Country: None (occurrence: None)
  Receive Date: 20040126
  Receipt Date: 20030828
  Transmission Date: 20041129
  Serious: No
  Sender: FDA-Public Use
  Company Number: USA030845723

PATIENT
  Age: 62 Year
  Sex: Female
  Weight: 70 kg

DRUGS (10)
  1. FORTEO [Suspect]
     Indication: OSTEOPOROSIS
     Dates: start: 20030814
  2. ASACL (MESALAZINE) [Concomitant]
  3. NORVASC [Concomitant]
  4. NEXIUM [Concomitant]
  5. OSCAL (CALCIUM CARBONATE) [Concomitant]
  6. FOLTX [Concomitant]
  7. PREMARIN [Concomitant]
  8. METHOTREXATE [Concomitant]
  9. CELEBREX [Concomitant]
  10. URSODIOL [Concomitant]

REACTIONS (4)
  - ARTHRALGIA [None]
  - BACK PAIN [None]
  - COCCYDYNIA [None]
  - PAIN [None]
